FAERS Safety Report 5802606-1 (Version None)
Quarter: 2008Q3

REPORT INFORMATION
  Report Type: 
  Country: None (occurrence: None)
  Receive Date: 20080703
  Receipt Date: 20080618
  Transmission Date: 20090109
  Serious: Yes (Life-Threatening, Disabling)
  Sender: FDA-Public Use
  Company Number: S08-UKI-02146-01

PATIENT
  Age: 86 Year
  Sex: Female

DRUGS (3)
  1. CITALOPRAM HYDROBROMIDE [Suspect]
     Indication: DEPRESSION
     Dates: start: 20080326, end: 20080414
  2. QUETIAPINE FUMARATE [Suspect]
     Indication: AGITATION
     Dosage: 25 MG QD PO
     Route: 048
     Dates: start: 20080330, end: 20080408
  3. QUETIAPINE FUMARATE [Suspect]
     Indication: PSYCHOTIC DISORDER
     Dosage: 25 MG QD PO
     Route: 048
     Dates: start: 20080330, end: 20080408

REACTIONS (2)
  - EXTRAPYRAMIDAL DISORDER [None]
  - HYPONATRAEMIA [None]
